APPROVED DRUG PRODUCT: SULFAIR 10
Active Ingredient: SULFACETAMIDE SODIUM
Strength: 10%
Dosage Form/Route: OINTMENT;OPHTHALMIC
Application: A088000 | Product #001
Applicant: PHARMAFAIR INC
Approved: Dec 22, 1982 | RLD: No | RS: No | Type: DISCN